FAERS Safety Report 20941535 (Version 1)
Quarter: 2022Q2

REPORT INFORMATION
  Report Type: Spontaneous
  Country: US (occurrence: US)
  Receive Date: 20220610
  Receipt Date: 20220610
  Transmission Date: 20220720
  Serious: No
  Sender: FDA-Public Use
  Company Number: US-GLAXOSMITHKLINE-US2022AMR089174

PATIENT
  Age: 79 Year
  Sex: Female

DRUGS (1)
  1. ZEJULA [Suspect]
     Active Substance: NIRAPARIB
     Indication: Ovarian cancer
     Dosage: 2 DF, QD (2 CAPSULE DAILY)
     Dates: start: 20220512

REACTIONS (2)
  - Aortic valve disease [Unknown]
  - Off label use [Unknown]

NARRATIVE: CASE EVENT DATE: 20220512
